FAERS Safety Report 6771254-1 (Version None)
Quarter: 2010Q2

REPORT INFORMATION
  Report Type: 
  Country: None (occurrence: None)
  Receive Date: 20100616
  Receipt Date: 20100607
  Transmission Date: 20101027
  Serious: Yes (Hospitalization)
  Sender: FDA-Public Use
  Company Number: AT-MPIJNJ-2010-01170

PATIENT

DRUGS (17)
  1. VELCADE [Suspect]
     Indication: MULTIPLE MYELOMA
     Dosage: 1.3 MG/M2, UNK
     Route: 042
     Dates: start: 20100125, end: 20100413
  2. THALIDOMIDE [Suspect]
     Indication: MULTIPLE MYELOMA
     Dosage: 200 MG, QD
     Route: 048
     Dates: start: 20100125, end: 20100502
  3. DEXAMETHASONE [Suspect]
     Indication: MULTIPLE MYELOMA
     Dosage: 40 MG, UNK
     Route: 048
     Dates: start: 20100125, end: 20100408
  4. ITERIUM [Concomitant]
     Indication: HYPERTENSION
     Dosage: 1 MG, QD
     Route: 048
  5. MAXIPIME [Concomitant]
     Indication: PNEUMONIA
     Dosage: 1 G, BID
     Route: 042
     Dates: start: 20100206, end: 20100214
  6. ZOVIRAX                            /00587301/ [Concomitant]
     Indication: PNEUMONIA
     Dosage: 400 MG, BID
     Route: 048
     Dates: start: 20100206
  7. MUCOSOLVAN                         /00546001/ [Concomitant]
     Indication: PNEUMONIA
     Dosage: 4 ML, TID
     Route: 048
     Dates: start: 20100207
  8. COMBIVENT [Concomitant]
     Indication: PNEUMONIA
     Dosage: 2.5 ML, UNK
     Route: 048
     Dates: start: 20100208
  9. AVELOX [Concomitant]
     Indication: PNEUMONIA
     Dosage: 400 MG, QD
     Route: 042
     Dates: start: 20100211, end: 20100226
  10. AEROMUC [Concomitant]
     Indication: PNEUMONIA
     Dosage: 600 MG, UNK
     Route: 048
     Dates: start: 20100212, end: 20100212
  11. CANCIDAS [Concomitant]
     Indication: PNEUMONIA
     Dosage: 50 MG, QD
     Route: 042
     Dates: start: 20100215, end: 20100224
  12. OPTINEM                            /01250501/ [Concomitant]
     Indication: PNEUMONIA
     Dosage: 1 G, TID
     Route: 042
     Dates: start: 20100213, end: 20100224
  13. ELOMEL [Concomitant]
     Indication: FLUID REPLACEMENT
     Dosage: 1 L, PRN
     Route: 042
     Dates: start: 20100206, end: 20100214
  14. PANTOLOC                           /01263201/ [Concomitant]
     Indication: PROPHYLAXIS AGAINST GASTROINTESTINAL ULCER
     Dosage: 40 MG, QD
     Route: 048
     Dates: start: 20100207
  15. LOVENOX [Concomitant]
     Indication: THROMBOSIS PROPHYLAXIS
     Dosage: 20 MG, QD
     Route: 058
     Dates: start: 20100206, end: 20100224
  16. LASIX [Concomitant]
     Indication: HYPERTENSION
     Dosage: 40 MG, QD
     Route: 042
     Dates: start: 20100209
  17. PARKEMED [Concomitant]
     Indication: PYREXIA
     Dosage: 500 MG, PRN
     Route: 048
     Dates: start: 20100206, end: 20100213

REACTIONS (3)
  - CARDIOMYOPATHY [None]
  - HYPERTENSION [None]
  - PNEUMONIA [None]
